FAERS Safety Report 26183647 (Version 1)
Quarter: 2025Q4

REPORT INFORMATION
  Report Type: Spontaneous
  Country: JP (occurrence: JP)
  Receive Date: 20251221
  Receipt Date: 20251221
  Transmission Date: 20260118
  Serious: Yes (Other)
  Sender: SANOFI AVENTIS
  Company Number: JP-SA-2025SA375659

PATIENT
  Age: 6 Decade
  Sex: Male

DRUGS (1)
  1. ALTUVIIIO [Suspect]
     Active Substance: EFANESOCTOCOG ALFA
     Indication: Product used for unknown indication
     Dosage: UNK
     Route: 042
     Dates: start: 2024

REACTIONS (4)
  - Angina pectoris [Not Recovered/Not Resolved]
  - Chest pain [Not Recovered/Not Resolved]
  - Chest discomfort [Not Recovered/Not Resolved]
  - Cardiovascular disorder [Not Recovered/Not Resolved]

NARRATIVE: CASE EVENT DATE: 20250101
